FAERS Safety Report 7619875-8 (Version None)
Quarter: 2011Q3

REPORT INFORMATION
  Report Type: 
  Country: None (occurrence: None)
  Receive Date: 20110719
  Receipt Date: 20110705
  Transmission Date: 20111222
  Serious: Yes (Hospitalization)
  Sender: FDA-Public Use
  Company Number: FI-SANOFI-AVENTIS-2011SA044111

PATIENT
  Age: 72 Year
  Sex: Female
  Weight: 127 kg

DRUGS (6)
  1. FUROSEMIDE [Concomitant]
  2. DRONEDARONE HCL [Suspect]
     Indication: ATRIAL FIBRILLATION
     Route: 048
     Dates: start: 20110303
  3. BISOPROLOL [Concomitant]
  4. SIMVASTATIN [Concomitant]
  5. LOSARTAN [Concomitant]
  6. WARFARIN SODIUM [Concomitant]

REACTIONS (2)
  - CARDIAC FAILURE [None]
  - ANGINA UNSTABLE [None]
